FAERS Safety Report 7183113-3 (Version None)
Quarter: 2010Q4

REPORT INFORMATION
  Report Type: 
  Country: None (occurrence: None)
  Receive Date: 20101210
  Receipt Date: 20101124
  Transmission Date: 20110411
  Serious: Yes (Other)
  Sender: FDA-Public Use
  Company Number: 2009000262

PATIENT
  Age: 53 Year
  Sex: Male

DRUGS (2)
  1. ERLOTINIB (ERLOTINIB) (TABLET) (ERLOTINIB) [Suspect]
     Indication: LUNG NEOPLASM MALIGNANT
     Dosage: 150 MG, 1 X PER DAY) ORAL
     Route: 048
     Dates: start: 20081202, end: 20090117
  2. TOLEXINE (DOXYCYCLINE) [Suspect]
     Indication: NON-SMALL CELL LUNG CANCER
     Dosage: 100 MG, 1 X PER DAY, ORAL
     Route: 048
     Dates: start: 20081202, end: 20090117

REACTIONS (4)
  - ARRHYTHMIA [None]
  - CEREBROVASCULAR ACCIDENT [None]
  - COMA [None]
  - PLEURAL EFFUSION [None]
